FAERS Safety Report 9349219 (Version 9)
Quarter: 2013Q4

REPORT INFORMATION
  Report Type: Report from Study
  Country: TR (occurrence: TR)
  Receive Date: 20130614
  Receipt Date: 20131127
  Transmission Date: 20140711
  Serious: Yes (Death, Hospitalization)
  Sender: FDA-Public Use
  Company Number: TR-ROCHE-1226925

PATIENT
  Age: 48 Year
  Sex: Male
  Weight: 76 kg

DRUGS (4)
  1. VEMURAFENIB [Suspect]
     Indication: MALIGNANT MELANOMA
     Dosage: LAST DOSE PRIOR TO EVENT ON 15/MAY/2013
     Route: 048
     Dates: start: 20111031, end: 20130516
  2. EXFORGE [Concomitant]
     Route: 065
     Dates: start: 201110
  3. LEVEMIR [Concomitant]
     Route: 065
     Dates: start: 201110
  4. GLUCOPHAGE [Concomitant]
     Route: 065
     Dates: start: 201110

REACTIONS (1)
  - Colitis ulcerative [Fatal]
